FAERS Safety Report 6784730-2 (Version None)
Quarter: 2010Q2

REPORT INFORMATION
  Report Type: 
  Country: None (occurrence: None)
  Receive Date: 20100622
  Receipt Date: 20100611
  Transmission Date: 20101027
  Serious: Yes (Hospitalization)
  Sender: FDA-Public Use
  Company Number: US-JNJFOC-20100510681

PATIENT
  Age: 5 Year
  Sex: Male

DRUGS (7)
  1. CHILDREN'S MOTRIN [Suspect]
  2. CHILDREN'S MOTRIN [Suspect]
     Indication: MULTIPLE ALLERGIES
  3. CHILDREN'S TYLENOL SUSPENSION [Suspect]
     Indication: MULTIPLE ALLERGIES
     Route: 048
  4. CHILDREN'S TYLENOL SUSPENSION [Suspect]
     Indication: PYREXIA
     Route: 048
  5. CHILDREN'S TYLENOL SUSPENSION [Suspect]
     Route: 048
  6. CHILDREN'S TYLENOL SUSPENSION [Suspect]
     Indication: DRUG USE FOR UNKNOWN INDICATION
     Route: 048
  7. BENADRYL [Suspect]
     Indication: DRUG USE FOR UNKNOWN INDICATION

REACTIONS (5)
  - DYSPNOEA [None]
  - PRODUCT QUALITY ISSUE [None]
  - PYREXIA [None]
  - RESPIRATORY TRACT INFECTION [None]
  - TRANSMISSION OF AN INFECTIOUS AGENT VIA A MEDICINAL PRODUCT [None]
